FAERS Safety Report 5430852-8 (Version None)
Quarter: 2007Q3

REPORT INFORMATION
  Report Type: 
  Country: None (occurrence: None)
  Receive Date: 20070830
  Receipt Date: 20061215
  Transmission Date: 20080115
  Serious: No
  Sender: FDA-Public Use
  Company Number: A0631727A

PATIENT
  Age: 49 Year
  Sex: Female

DRUGS (5)
  1. WELLBUTRIN XL [Suspect]
     Indication: DEPRESSION
     Dosage: 150MG PER DAY
     Route: 048
  2. UNKNOWN MEDICATION [Concomitant]
  3. FLUOXETINE HCL [Concomitant]
  4. MS CONTIN [Concomitant]
  5. ACETAMINOPHEN AND HYDROCODONE BITARTRATE [Concomitant]

REACTIONS (1)
  - ILL-DEFINED DISORDER [None]
